FAERS Safety Report 15376746 (Version 1)
Quarter: 2018Q3

REPORT INFORMATION
  Report Type: Report from Study
  Country: None (occurrence: PE)
  Receive Date: 20180913
  Receipt Date: 20180913
  Transmission Date: 20181010
  Serious: Yes (Other)
  Sender: FDA-Public Use
  Company Number: PE-ABBVIE-18S-127-2482442-00

PATIENT
  Age: 80 Year
  Sex: Male
  Weight: 70 kg

DRUGS (1)
  1. VIEKIRA PAK [Suspect]
     Active Substance: DASABUVIR\OMBITASVIR\PARITAPREVIR\RITONAVIR
     Indication: HEPATITIS C
     Route: 048
     Dates: start: 20180906

REACTIONS (5)
  - Headache [Recovered/Resolved]
  - Fatigue [Unknown]
  - Autonomic nervous system imbalance [Unknown]
  - Tachycardia [Unknown]
  - Bronchospasm [Unknown]

NARRATIVE: CASE EVENT DATE: 20180906
